FAERS Safety Report 14871046 (Version 1)
Quarter: 2018Q2

REPORT INFORMATION
  Report Type: Spontaneous
  Country: US (occurrence: US)
  Receive Date: 20180424
  Receipt Date: 20180424
  Transmission Date: 20180711
  Serious: Yes (Life-Threatening, Hospitalization)
  Sender: FDA-Public Use
  Company Number: None

PATIENT
  Age: 70 Year
  Sex: Female
  Weight: 94.5 kg

DRUGS (14)
  1. WELLBUTRIN [Concomitant]
     Active Substance: BUPROPION HYDROCHLORIDE
  2. TUMERIC [Concomitant]
     Active Substance: HERBALS\TURMERIC
  3. ASTHAXIN [Concomitant]
  4. THYROXINE [Concomitant]
     Active Substance: LEVOTHYROXINE
  5. LUTEIN [Concomitant]
     Active Substance: LUTEIN
  6. UBIQUINOL [Concomitant]
     Active Substance: UBIQUINOL
  7. MULTIVITAMIN [Suspect]
     Active Substance: VITAMINS
  8. GLUCOSAMINE [Concomitant]
     Active Substance: GLUCOSAMINE
  9. VITAMIN D3 [Concomitant]
     Active Substance: CHOLECALCIFEROL
  10. CALCIUM [Concomitant]
     Active Substance: CALCIUM
  11. XARELTO [Suspect]
     Active Substance: RIVAROXABAN
     Indication: THROMBOSIS
     Route: 048
     Dates: start: 20170401, end: 20170804
  12. LITHIUM. [Concomitant]
     Active Substance: LITHIUM
  13. PROBIOTICS [Concomitant]
     Active Substance: PROBIOTICS NOS
  14. CELEXA [Concomitant]
     Active Substance: CITALOPRAM HYDROBROMIDE

REACTIONS (4)
  - Contusion [None]
  - Platelet count decreased [None]
  - Angina bullosa haemorrhagica [None]
  - Rash [None]

NARRATIVE: CASE EVENT DATE: 20170804
